FAERS Safety Report 22185634 (Version 1)
Quarter: 2023Q2

REPORT INFORMATION
  Report Type: Spontaneous
  Country: CA (occurrence: None)
  Receive Date: 20230407
  Receipt Date: 20230407
  Transmission Date: 20230721
  Serious: Yes (Death)
  Sender: FDA-Public Use
  Company Number: 2023A081511

PATIENT
  Age: 56 Year
  Sex: Male

DRUGS (5)
  1. QUETIAPINE [Suspect]
     Active Substance: QUETIAPINE
     Route: 048
  2. PREGABALIN [Suspect]
     Active Substance: PREGABALIN
  3. HYDROMORPHONE [Suspect]
     Active Substance: HYDROMORPHONE
  4. ALCOHOL [Suspect]
     Active Substance: ALCOHOL
  5. ACETAMINOPHEN [Concomitant]
     Active Substance: ACETAMINOPHEN

REACTIONS (3)
  - Alcohol poisoning [Fatal]
  - Nervous system disorder [Fatal]
  - Toxicity to various agents [Fatal]
